FAERS Safety Report 9229846 (Version 1)
Quarter: 2013Q2

REPORT INFORMATION
  Report Type: Spontaneous
  Country: US (occurrence: None)
  Receive Date: 20130411
  Receipt Date: 20130411
  Transmission Date: 20140414
  Serious: No
  Sender: FDA-Public Use
  Company Number: None

PATIENT
  Sex: Female

DRUGS (1)
  1. XANAX [Suspect]

REACTIONS (5)
  - Pharyngeal disorder [None]
  - Dental caries [None]
  - Thyroiditis [None]
  - Unevaluable event [None]
  - Product quality issue [None]
